FAERS Safety Report 4666378-9 (Version None)
Quarter: 2005Q2

REPORT INFORMATION
  Report Type: 
  Country: None (occurrence: None)
  Receive Date: 20050518
  Receipt Date: 20050504
  Transmission Date: 20051028
  Serious: Yes (Other)
  Sender: FDA-Public Use
  Company Number: S05-USA-02390-01

PATIENT
  Age: 42 Year
  Sex: Male
  Weight: 46.7205 kg

DRUGS (4)
  1. CELEXA [Suspect]
     Indication: DEPRESSION
     Dates: start: 20050301
  2. METHADONE HCL [Concomitant]
  3. ZOFRAN [Concomitant]
  4. METOCLOPRAMIDE [Concomitant]

REACTIONS (9)
  - AGITATION [None]
  - CONFUSIONAL STATE [None]
  - DIARRHOEA [None]
  - HALLUCINATION, VISUAL [None]
  - MENTAL STATUS CHANGES [None]
  - MYDRIASIS [None]
  - PUPILS UNEQUAL [None]
  - PYREXIA [None]
  - TREMOR [None]
